FAERS Safety Report 10530395 (Version 2)
Quarter: 2014Q4

REPORT INFORMATION
  Report Type: Spontaneous
  Country: JP (occurrence: None)
  Receive Date: 20141017
  Receipt Date: 20141021
  Transmission Date: 20150528
  Serious: Yes (Other)
  Sender: FDA-Public Use
  Company Number: ADR-2014-01911

PATIENT
  Age: 56 Year
  Sex: Male

DRUGS (2)
  1. GABLOFEN [Suspect]
     Active Substance: BACLOFEN
  2. DEPAKENE SYRUP [Concomitant]

REACTIONS (4)
  - Muscle spasticity [None]
  - Muscle contracture [None]
  - Drug ineffective [None]
  - Cholecystitis [None]
